FAERS Safety Report 15477541 (Version 5)
Quarter: 2018Q4

REPORT INFORMATION
  Report Type: Spontaneous
  Country: US (occurrence: US)
  Receive Date: 20181009
  Receipt Date: 20181210
  Transmission Date: 20190205
  Serious: Yes (Life-Threatening, Hospitalization, Other)
  Sender: FDA-Public Use
  Company Number: US-B.I. PHARMACEUTICALS,INC./RIDGEFIELD-2018-BI-048943

PATIENT
  Age: 75 Year
  Sex: Male

DRUGS (1)
  1. OFEV [Suspect]
     Active Substance: NINTEDANIB
     Indication: IDIOPATHIC PULMONARY FIBROSIS
     Route: 048
     Dates: start: 20180824, end: 20180831

REACTIONS (13)
  - Diplopia [Unknown]
  - Muscular weakness [Unknown]
  - Dysstasia [Unknown]
  - Balance disorder [Unknown]
  - Dysphagia [Unknown]
  - Urinary incontinence [Unknown]
  - Cerebral thrombosis [Unknown]
  - Vision blurred [Unknown]
  - Balance disorder [Unknown]
  - Arterial thrombosis [Unknown]
  - Cerebrovascular accident [Unknown]
  - Anal incontinence [Unknown]
  - Coordination abnormal [Unknown]

NARRATIVE: CASE EVENT DATE: 201808
